FAERS Safety Report 5046182-2 (Version None)
Quarter: 2006Q2

REPORT INFORMATION
  Report Type: 
  Country: None (occurrence: None)
  Receive Date: 20060601
  Receipt Date: 20060322
  Transmission Date: 20061013
  Serious: No
  Sender: FDA-Public Use
  Company Number: 2006-BP-03276BP

PATIENT
  Age: 60 Year
  Sex: Female

DRUGS (8)
  1. SPIRIVA [Suspect]
     Indication: CHRONIC OBSTRUCTIVE PULMONARY DISEASE
     Dosage: 18 MCG(18 MCG),IH
  2. SPIRIVA [Suspect]
  3. FLONASE [Concomitant]
  4. SINGULAIR [Concomitant]
  5. ALLEGRA [Concomitant]
  6. ALBUTEROL [Concomitant]
  7. XOPENEX [Concomitant]
  8. LEVOALBUTEROL HCI (LEVOSALBUTAMOL HYDROCHLORIDE) [Concomitant]

REACTIONS (1)
  - DYSGEUSIA [None]
